FAERS Safety Report 4886467-3 (Version None)
Quarter: 2006Q1

REPORT INFORMATION
  Report Type: 
  Country: None (occurrence: None)
  Receive Date: 20060120
  Receipt Date: 20051129
  Transmission Date: 20060701
  Serious: Yes (Death)
  Sender: FDA-Public Use
  Company Number: US-BRISTOL-MYERS SQUIBB COMPANY-13198551

PATIENT
  Age: 59 Year
  Sex: Male

DRUGS (1)
  1. MEGACE [Suspect]
     Indication: INCREASED APPETITE
     Route: 048
     Dates: start: 20051104, end: 20051104

REACTIONS (2)
  - MALIGNANT NEOPLASM PROGRESSION [None]
  - NAUSEA [None]
